FAERS Safety Report 15701212 (Version 1)
Quarter: 2018Q4

REPORT INFORMATION
  Report Type: Spontaneous
  Country: US (occurrence: US)
  Receive Date: 20181207
  Receipt Date: 20181207
  Transmission Date: 20190205
  Serious: No
  Sender: FDA-Public Use
  Company Number: US-009507513-1812USA003233

PATIENT
  Age: 29 Year
  Sex: Female
  Weight: 68.93 kg

DRUGS (1)
  1. NEXPLANON [Suspect]
     Active Substance: ETONOGESTREL
     Indication: CONTRACEPTION
     Dosage: 3 YEAR
     Route: 059
     Dates: start: 20181203

REACTIONS (2)
  - Implant site pain [Not Recovered/Not Resolved]
  - Implant site warmth [Not Recovered/Not Resolved]

NARRATIVE: CASE EVENT DATE: 20181203
